FAERS Safety Report 7297931-4 (Version None)
Quarter: 2011Q1

REPORT INFORMATION
  Report Type: 
  Country: None (occurrence: None)
  Receive Date: 20110217
  Receipt Date: 20110207
  Transmission Date: 20110831
  Serious: Yes (Other)
  Sender: FDA-Public Use
  Company Number: US-JNJFOC-20110202558

PATIENT
  Sex: Female
  Weight: 79.38 kg

DRUGS (13)
  1. FEXOFENADINE [Concomitant]
     Indication: MULTIPLE ALLERGIES
  2. BENAZEPRIL [Concomitant]
     Indication: HYPERTENSION
  3. LEVOTHYROXINE SODIUM [Concomitant]
     Indication: HYPOTHYROIDISM
  4. PANTOPRAZOLE [Concomitant]
     Indication: GASTROOESOPHAGEAL REFLUX DISEASE
  5. MACROBID [Suspect]
     Indication: URINARY TRACT INFECTION
  6. AMLODIPINE [Concomitant]
     Indication: HYPERTENSION
  7. LYRICA [Concomitant]
     Indication: MULTIPLE ALLERGIES
  8. SIMPONI [Suspect]
     Indication: RHEUMATOID ARTHRITIS
     Route: 058
  9. ESTRADIOL [Concomitant]
     Indication: ARTIFICIAL MENOPAUSE
  10. PERCOCET [Concomitant]
     Indication: PAIN
  11. PREDNISONE TAB [Concomitant]
     Indication: RHEUMATOID ARTHRITIS
  12. FENTANYL-100 [Concomitant]
     Indication: PAIN
  13. PULMICORT [Concomitant]
     Indication: MULTIPLE ALLERGIES

REACTIONS (2)
  - URINARY TRACT INFECTION [None]
  - SWOLLEN TONGUE [None]
